FAERS Safety Report 19174733 (Version 3)
Quarter: 2021Q3

REPORT INFORMATION
  Report Type: Spontaneous
  Country: JP (occurrence: JP)
  Receive Date: 20210423
  Receipt Date: 20210831
  Transmission Date: 20211014
  Serious: Yes (Other)
  Sender: FDA-Public Use
  Company Number: JP-009507513-2103JPN001570J

PATIENT
  Age: 77 Year
  Sex: Male
  Weight: 67 kg

DRUGS (10)
  1. MAGNESIUM OXIDE. [Concomitant]
     Active Substance: MAGNESIUM OXIDE
     Indication: FAECAL MANAGEMENT
     Dosage: 0.67 GRAM, QD
     Route: 048
     Dates: start: 20201021, end: 20201027
  2. LUNESTA [Concomitant]
     Active Substance: ESZOPICLONE
     Indication: INSOMNIA
     Dosage: 2 MILLIGRAM/DAY
     Route: 048
     Dates: end: 20201018
  3. BEZAFIBRATE [Concomitant]
     Active Substance: BEZAFIBRATE
     Indication: BLOOD CHOLESTEROL INCREASED
     Dosage: 200 MILLIGRAM, BID
     Route: 048
     Dates: start: 20201019, end: 20201027
  4. AMITIZA [Concomitant]
     Active Substance: LUBIPROSTONE
     Indication: FAECAL MANAGEMENT
     Dosage: 24 MICROGRAM, QD
     Route: 048
     Dates: end: 20201019
  5. KETOPROFEN. [Concomitant]
     Active Substance: KETOPROFEN
     Indication: BACK PAIN
     Dosage: 20 MILLIGRAM, QD
     Dates: start: 20201019, end: 20201027
  6. TELMISARTAN. [Concomitant]
     Active Substance: TELMISARTAN
     Indication: BLOOD PRESSURE INCREASED
     Dosage: 40 MILLIGRAM, QD
     Route: 048
     Dates: start: 20201019, end: 20201027
  7. BELSOMRA [Suspect]
     Active Substance: SUVOREXANT
     Indication: INSOMNIA
     Dosage: 15 MILLIGRAM, QD
     Route: 048
     Dates: start: 20201019, end: 20201022
  8. AMLODIPINE [AMLODIPINE BESILATE] [Concomitant]
     Active Substance: AMLODIPINE BESYLATE
     Indication: BLOOD PRESSURE INCREASED
     Dosage: 2.5 MILLIGRAM, QD
     Route: 048
     Dates: start: 20201019, end: 20201027
  9. CARBOCISTEINE [Concomitant]
     Active Substance: CARBOCYSTEINE
     Indication: PRODUCTIVE COUGH
     Dosage: 500 MILLIGRAM, TID
     Route: 048
  10. LYRICA [Concomitant]
     Active Substance: PREGABALIN
     Indication: HYPOAESTHESIA
     Dosage: 75 MILLIGRAM, BID
     Route: 048
     Dates: start: 20201019, end: 20201027

REACTIONS (3)
  - Hallucination [Recovered/Resolved]
  - Aspartate aminotransferase increased [Unknown]
  - Drug ineffective [Unknown]

NARRATIVE: CASE EVENT DATE: 20201019
